FAERS Safety Report 10136504 (Version 1)
Quarter: 2014Q2

REPORT INFORMATION
  Report Type: Spontaneous
  Country: US (occurrence: None)
  Receive Date: 20140428
  Receipt Date: 20140428
  Transmission Date: 20141212
  Serious: No
  Sender: FDA-Public Use
  Company Number: None

PATIENT
  Age: 77 Year
  Sex: Male

DRUGS (1)
  1. LATANOPROST [Suspect]
     Dosage: INSTILL ONE DROP IN EACH EYE ONCE DAILY IN THE EVENING
     Dates: start: 20131115

REACTIONS (1)
  - Product closure removal difficult [None]
